FAERS Safety Report 9406534 (Version 1)
Quarter: 2013Q3

REPORT INFORMATION
  Report Type: Spontaneous
  Country: US (occurrence: US)
  Receive Date: 20130718
  Receipt Date: 20130718
  Transmission Date: 20140515
  Serious: No
  Sender: FDA-Public Use
  Company Number: US-009507513-2011SP032528

PATIENT
  Age: 23 Year
  Sex: Female
  Weight: 99.79 kg

DRUGS (1)
  1. IMPLANON [Suspect]
     Indication: CONTRACEPTION
     Dosage: UNK
     Route: 058
     Dates: start: 20100629

REACTIONS (2)
  - Pregnancy with implant contraceptive [Unknown]
  - Amenorrhoea [Unknown]
